FAERS Safety Report 4946182-4 (Version None)
Quarter: 2006Q1

REPORT INFORMATION
  Report Type: 
  Country: None (occurrence: None)
  Receive Date: 20060118
  Receipt Date: 20050104
  Transmission Date: 20060701
  Serious: Yes (Hospitalization)
  Sender: FDA-Public Use
  Company Number: US-JNJFOC-20041200603

PATIENT
  Age: 66 Year
  Sex: Male
  Weight: 72.1219 kg

DRUGS (6)
  1. DOXIL [Suspect]
     Indication: MULTIPLE MYELOMA
     Dosage: 70 MG, INTRAVENOUS
     Route: 042
     Dates: start: 20041124
  2. BACTRIM DS [Concomitant]
  3. DECADRON [Concomitant]
  4. VINCRISTINE [Concomitant]
  5. DIFLUCAN [Concomitant]
  6. KYTRIL [Concomitant]

REACTIONS (1)
  - PANCREATITIS [None]
